FAERS Safety Report 5119167-5 (Version None)
Quarter: 2006Q3

REPORT INFORMATION
  Report Type: 
  Country: None (occurrence: None)
  Receive Date: 20060929
  Receipt Date: 20060929
  Transmission Date: 20061208
  Serious: Yes (Death)
  Sender: FDA-Public Use
  Company Number: None

PATIENT
  Age: 61 Year
  Sex: Male
  Weight: 72.5755 kg

DRUGS (2)
  1. BIAXIN [Suspect]
     Indication: HYPERVENTILATION
     Dosage: BIAXIN   500MG    ONCE
     Dates: start: 20050310, end: 20050317
  2. BIAXIN XL [Suspect]
     Dosage: BIAXIN  DL     7 DAYS

REACTIONS (3)
  - HEPATIC FAILURE [None]
  - MALAISE [None]
  - RENAL FAILURE [None]
